FAERS Safety Report 10355250 (Version 2)
Quarter: 2014Q3

REPORT INFORMATION
  Report Type: Spontaneous
  Country: US (occurrence: None)
  Receive Date: 20140729
  Receipt Date: 20140807
  Transmission Date: 20150326
  Serious: Yes (Other)
  Sender: FDA-Public Use
  Company Number: 2014-US-009103

PATIENT
  Age: 43 Year
  Sex: Female
  Weight: 53.5 kg

DRUGS (9)
  1. ADVAIR HFA (FLUTICASONE PROPIONATE, SALMETEROL XINAFOATE) [Concomitant]
  2. XYREM [Suspect]
     Active Substance: SODIUM OXYBATE
     Indication: NARCOLEPSY
     Route: 048
     Dates: start: 20101120, end: 2010
  3. XYREM [Suspect]
     Active Substance: SODIUM OXYBATE
     Indication: CATAPLEXY
     Route: 048
     Dates: start: 20101120, end: 2010
  4. XOLAIR [Concomitant]
     Active Substance: OMALIZUMAB
  5. TOPROL (METOPROLOL SUCCINATE) [Concomitant]
  6. CARBAMAZEPINE. [Concomitant]
     Active Substance: CARBAMAZEPINE
  7. METHYLPHENIDATE (METHYLPHENIDATE HYDROCHLORIDE) [Concomitant]
  8. XOPENEX (LEVOSALBUTAMOL HYDROCHLORIDE) [Concomitant]
  9. DHEA (PRASTERONE) [Concomitant]

REACTIONS (3)
  - Herpes zoster [None]
  - Sleep apnoea syndrome [None]
  - Crohn^s disease [None]

NARRATIVE: CASE EVENT DATE: 201104
